FAERS Safety Report 9011500 (Version 2)
Quarter: 2013Q1

REPORT INFORMATION
  Report Type: Spontaneous
  Country: US (occurrence: US)
  Receive Date: 20130108
  Receipt Date: 20130221
  Transmission Date: 20140127
  Serious: Yes (Other)
  Sender: FDA-Public Use
  Company Number: PHEH2013US000570

PATIENT
  Sex: Female

DRUGS (2)
  1. DIOVAN HCT [Suspect]
     Dosage: 1 DF, BID
     Route: 048
  2. INDERAL [Concomitant]
     Dosage: UNK UKN, UNK

REACTIONS (1)
  - Thrombosis [Unknown]
